FAERS Safety Report 14952362 (Version 6)
Quarter: 2019Q2

REPORT INFORMATION
  Report Type: Spontaneous
  Country: US (occurrence: US)
  Receive Date: 20180530
  Receipt Date: 20190509
  Transmission Date: 20190711
  Serious: Yes (Other)
  Sender: FDA-Public Use
  Company Number: US-PFIZER INC-2018214997

PATIENT
  Age: 52 Year
  Sex: Female

DRUGS (4)
  1. SILVADENE [Suspect]
     Active Substance: SILVER SULFADIAZINE
     Dosage: UNK
     Route: 061
  2. SILVADENE [Suspect]
     Active Substance: SILVER SULFADIAZINE
     Indication: WOUND
     Dosage: UNK
     Route: 061
  3. SILVADENE [Suspect]
     Active Substance: SILVER SULFADIAZINE
     Indication: CHEMICAL BURN OF SKIN
     Dosage: THREE TO FOUR TIMES A DAY (6 TO 8 HOURS)
     Route: 061
  4. ZYRTEC [Concomitant]
     Active Substance: CETIRIZINE HYDROCHLORIDE
     Indication: HYPERSENSITIVITY
     Dosage: 10 MG, UNK

REACTIONS (5)
  - Scar [Unknown]
  - Drug ineffective [Unknown]
  - Rash [Unknown]
  - Wound infection [Unknown]
  - Application site discolouration [Recovering/Resolving]
